FAERS Safety Report 16325795 (Version 2)
Quarter: 2019Q2

REPORT INFORMATION
  Report Type: Spontaneous
  Country: ES (occurrence: ES)
  Receive Date: 20190517
  Receipt Date: 20190604
  Transmission Date: 20190711
  Serious: Yes (Hospitalization, Other)
  Sender: FDA-Public Use
  Company Number: ES-SA-2019SA127830

PATIENT
  Age: 64 Year
  Sex: Female

DRUGS (3)
  1. OXALIPLATIN. [Suspect]
     Active Substance: OXALIPLATIN
     Indication: COLON CANCER STAGE IV
     Dosage: QCY
  2. CAPECITABINE. [Suspect]
     Active Substance: CAPECITABINE
     Indication: COLON CANCER STAGE IV
     Dosage: QCY
  3. BEVACIZUMAB. [Suspect]
     Active Substance: BEVACIZUMAB
     Indication: COLON CANCER STAGE IV
     Dosage: QCY

REACTIONS (6)
  - Toxicity to various agents [Recovered/Resolved]
  - Leukopenia [Recovered/Resolved]
  - Hypoalbuminaemia [Recovered/Resolved]
  - Drug intolerance [Recovered/Resolved]
  - Coagulopathy [Recovered/Resolved]
  - Enteritis [Recovered/Resolved]
